FAERS Safety Report 7940935-6 (Version None)
Quarter: 2011Q4

REPORT INFORMATION
  Report Type: 
  Country: None (occurrence: None)
  Receive Date: 20111128
  Receipt Date: 20111115
  Transmission Date: 20120403
  Serious: Yes (Other)
  Sender: FDA-Public Use
  Company Number: CA-ELI_LILLY_AND_COMPANY-CA201008002651

PATIENT
  Age: 65 Year
  Sex: Female

DRUGS (13)
  1. FOLIC ACID [Concomitant]
     Dosage: UNK
  2. GRAVOL TAB [Concomitant]
  3. LEVOTHYROXINE SODIUM [Concomitant]
     Indication: HYPOTHYROIDISM
  4. ADVAIR DISKUS 100/50 [Concomitant]
  5. SERC                               /00034201/ [Concomitant]
  6. CALCIUM [Concomitant]
     Indication: SUPPLEMENTATION THERAPY
     Dosage: 930 UNK, QD
  7. DIAMOX /00016901/ [Concomitant]
     Indication: MENIERE'S DISEASE
     Dosage: 125 MG, EACH MORNING
  8. CALCIUM [Concomitant]
     Dosage: 1100 MG, QD
  9. VENTOLIN [Concomitant]
  10. TRAZODONE HCL [Concomitant]
     Indication: SLEEP DISORDER
     Dosage: 50 MG, EACH EVENING
     Dates: start: 20100601
  11. VITAMIN D [Concomitant]
     Indication: SUPPLEMENTATION THERAPY
     Dosage: 2000 MG, QD
  12. FORTEO [Suspect]
     Indication: OSTEOPOROSIS
     Dosage: 20 UG, DAILY (1/D)
     Route: 058
     Dates: start: 20100225
  13. ZINC [Concomitant]
     Indication: SUPPLEMENTATION THERAPY
     Dosage: 30 MG, UNK

REACTIONS (6)
  - PNEUMOCYSTIS TEST POSITIVE [None]
  - NAUSEA [None]
  - NEPHROLITHIASIS [None]
  - FLANK PAIN [None]
  - RENAL CYST [None]
  - ATROPHIC VULVOVAGINITIS [None]
